FAERS Safety Report 19901028 (Version 1)
Quarter: 2021Q3

REPORT INFORMATION
  Report Type: Report from Study
  Country: US (occurrence: US)
  Receive Date: 20210929
  Receipt Date: 20210929
  Transmission Date: 20211014
  Serious: No
  Sender: FDA-Public Use
  Company Number: NVSC2021US221542

PATIENT

DRUGS (1)
  1. COSENTYX [Suspect]
     Active Substance: SECUKINUMAB
     Indication: PSORIATIC ARTHROPATHY
     Dosage: 150 MG, BENEATH THE SKIN, ONCE A WEEK FOR 5 WEEKS THEN ONCE EVERY 4 WEEKS
     Route: 058
     Dates: start: 202109

REACTIONS (1)
  - Drug ineffective [Unknown]
